FAERS Safety Report 21170996 (Version 1)
Quarter: 2022Q3

REPORT INFORMATION
  Report Type: Report from Study
  Country: NL (occurrence: NL)
  Receive Date: 20220804
  Receipt Date: 20220804
  Transmission Date: 20221027
  Serious: Yes (Other)
  Sender: FDA-Public Use
  Company Number: NL-NOVARTISPH-NVSC2022NL173953

PATIENT
  Age: 18 Year
  Sex: Female

DRUGS (1)
  1. ILARIS [Suspect]
     Active Substance: CANAKINUMAB
     Indication: Familial mediterranean fever
     Dosage: 1 DOSAGE FORM, EVERY 4 WEEKS
     Route: 058

REACTIONS (3)
  - Syncope [Recovered/Resolved]
  - Stab wound [Unknown]
  - Renal pain [Recovering/Resolving]

NARRATIVE: CASE EVENT DATE: 20220628
